FAERS Safety Report 6829732-2 (Version None)
Quarter: 2010Q3

REPORT INFORMATION
  Report Type: 
  Country: None (occurrence: None)
  Receive Date: 20100709
  Receipt Date: 20070525
  Transmission Date: 20110219
  Serious: No
  Sender: FDA-Public Use
  Company Number: US-PFIZER INC-2007010681

PATIENT
  Sex: Female
  Weight: 68 kg

DRUGS (4)
  1. CHANTIX [Suspect]
     Indication: SMOKING CESSATION THERAPY
  2. AMBIEN [Concomitant]
     Indication: SLEEP DISORDER
  3. PREMARIN [Concomitant]
  4. ACETYLSALICYLIC ACID [Concomitant]

REACTIONS (4)
  - CONSTIPATION [None]
  - INSOMNIA [None]
  - NAUSEA [None]
  - VOMITING [None]
